FAERS Safety Report 9529860 (Version 1)
Quarter: 2013Q3

REPORT INFORMATION
  Report Type: Spontaneous
  Country: US (occurrence: US)
  Receive Date: 20130917
  Receipt Date: 20130917
  Transmission Date: 20140515
  Serious: No
  Sender: FDA-Public Use
  Company Number: US-PFIZER INC-2013267743

PATIENT
  Sex: Female

DRUGS (3)
  1. CHANTIX [Suspect]
     Indication: SMOKING CESSATION THERAPY
     Dosage: UNK
     Route: 048
  2. PAXIL [Concomitant]
     Dosage: UNK
  3. ATIVAN [Concomitant]
     Indication: DEPRESSION
     Dosage: UNK

REACTIONS (1)
  - Abnormal dreams [Unknown]
